FAERS Safety Report 5245687-9 (Version None)
Quarter: 2007Q1

REPORT INFORMATION
  Report Type: 
  Country: None (occurrence: None)
  Receive Date: 20070223
  Receipt Date: 20070213
  Transmission Date: 20070707
  Serious: Yes (Death)
  Sender: FDA-Public Use
  Company Number: JP-PFIZER INC-2007012241

PATIENT
  Age: 63 Year
  Sex: Female
  Weight: 48 kg

DRUGS (5)
  1. VFEND [Suspect]
     Indication: BRONCHOPULMONARY ASPERGILLOSIS
     Route: 042
     Dates: start: 20060927, end: 20060928
  2. VFEND TABLETS [Suspect]
     Indication: BRONCHOPULMONARY ASPERGILLOSIS
     Route: 048
     Dates: start: 20060929, end: 20061025
  3. SULPERAZON [Concomitant]
     Route: 042
     Dates: start: 20061008, end: 20061020
  4. VEPESID [Concomitant]
     Route: 042
     Dates: start: 20061016, end: 20061019
  5. PREDONINE [Concomitant]
     Route: 042
     Dates: start: 20061011, end: 20061025

REACTIONS (1)
  - DEATH [None]
